FAERS Safety Report 9030879 (Version 4)
Quarter: 2013Q3

REPORT INFORMATION
  Report Type: Report from Study
  Country: US (occurrence: US)
  Receive Date: 20130123
  Receipt Date: 20130910
  Transmission Date: 20140515
  Serious: Yes (Other)
  Sender: FDA-Public Use
  Company Number: US-ROCHE-1181989

PATIENT
  Sex: 0

DRUGS (6)
  1. RITUXIMAB [Suspect]
     Indication: NON-HODGKIN^S LYMPHOMA
     Dosage: 375 MG/M SUP 2 GIVEN WEEKLY FOR 8 DOSES
     Route: 065
  2. RITUXIMAB [Suspect]
     Dosage: 375 MG/M SUP 2 , ON DAY 1 OF EACH CYCLE FOR 6 CYCLES
     Route: 065
  3. GS-1101 [Suspect]
     Indication: NON-HODGKIN^S LYMPHOMA
     Dosage: 100 MG/DOSE
     Route: 065
  4. GS-1101 [Suspect]
     Dosage: 150 MG/DOSE
     Route: 065
  5. BENDAMUSTINE [Suspect]
     Indication: NON-HODGKIN^S LYMPHOMA
     Dosage: 90 MG/M SUP 2 GIVEN ON DAYS 1 AND 2 OF EACH CYCLE FOR 6 CYCLES
     Route: 065
  6. BENDAMUSTINE [Suspect]
     Dosage: 90 MG/M SUP 2 GIVEN ON DAYS 1 AND 2 OF EACH CYCLE FOR 6 CYCLES
     Route: 065

REACTIONS (11)
  - Neutropenia [Unknown]
  - Anaemia [Unknown]
  - Thrombocytopenia [Unknown]
  - Infection [Unknown]
  - Pneumonia [Unknown]
  - Rash [Unknown]
  - Diarrhoea [Unknown]
  - Transaminases increased [Unknown]
  - Pyrexia [Unknown]
  - Fatigue [Unknown]
  - Upper respiratory tract infection [Unknown]
